FAERS Safety Report 13077289 (Version 1)
Quarter: 2016Q4

REPORT INFORMATION
  Report Type: Spontaneous
  Country: US (occurrence: US)
  Receive Date: 20161230
  Receipt Date: 20161230
  Transmission Date: 20170207
  Serious: Yes (Death)
  Sender: FDA-Public Use
  Company Number: US-TAIHO ONCOLOGY INC-EU-2016-03253

PATIENT
  Age: 45 Year
  Sex: Male

DRUGS (7)
  1. PROZAC [Concomitant]
     Active Substance: FLUOXETINE HYDROCHLORIDE
     Dosage: NI
  2. PEPCID [Concomitant]
     Active Substance: FAMOTIDINE
     Dosage: NI
  3. HYDROMORPHONE [Concomitant]
     Active Substance: HYDROMORPHONE
     Dosage: NI
  4. LONSURF [Suspect]
     Active Substance: TIPIRACIL HYDROCHLORIDE\TRIFLURIDINE
     Indication: COLORECTAL CANCER STAGE IV
     Route: 048
     Dates: start: 20160824, end: 201610
  5. LORAZEPAM. [Concomitant]
     Active Substance: LORAZEPAM
     Dosage: NI
  6. COMPAZINE [Concomitant]
     Active Substance: PROCHLORPERAZINE MALEATE
     Dosage: NI
  7. ZYPREXA [Concomitant]
     Active Substance: OLANZAPINE
     Dosage: NI

REACTIONS (4)
  - Nausea [Unknown]
  - Disease progression [Fatal]
  - Pain [Unknown]
  - Liver function test increased [Unknown]

NARRATIVE: CASE EVENT DATE: 201610
